FAERS Safety Report 8777075 (Version 2)
Quarter: 2012Q4

REPORT INFORMATION
  Report Type: 
  Country: US (occurrence: US)
  Receive Date: 20120911
  Receipt Date: 20120913
  Transmission Date: 20130627
  Serious: Yes (Death, Hospitalization)
  Sender: FDA-Public Use
  Company Number: US-ACTELION-A-NJ2012-59949

PATIENT
  Age: 85 Year
  Sex: Female

DRUGS (2)
  1. TRACLEER [Suspect]
     Indication: SLEEP APNOEA SYNDROME
     Dosage: UNK
     Route: 048
  2. COUMADIN [Concomitant]

REACTIONS (6)
  - Death [Fatal]
  - Cardiac failure congestive [Unknown]
  - Fluid retention [Unknown]
  - Cardiac valve disease [Unknown]
  - Dyspnoea [Unknown]
  - Cardiac disorder [Unknown]
